FAERS Safety Report 20727492 (Version 1)
Quarter: 2022Q2

REPORT INFORMATION
  Report Type: Spontaneous
  Country: US (occurrence: None)
  Receive Date: 20220419
  Receipt Date: 20220419
  Transmission Date: 20220721
  Serious: No
  Sender: FDA-Public Use
  Company Number: US-ROCHE-2889638

PATIENT
  Sex: Female
  Weight: 98.972 kg

DRUGS (12)
  1. AVASTIN [Suspect]
     Active Substance: BEVACIZUMAB
     Indication: Age-related macular degeneration
     Dosage: 100MG/4ML
     Route: 031
     Dates: start: 20210722, end: 20210818
  2. KLONOPIN [Suspect]
     Active Substance: CLONAZEPAM
     Indication: Vertigo positional
     Dosage: AT BEDTIME
     Route: 048
     Dates: start: 2003
  3. BASAGLAR [Concomitant]
     Active Substance: INSULIN GLARGINE
  4. LISINOPRIL [Concomitant]
     Active Substance: LISINOPRIL
  5. AMLODIPINE [Concomitant]
     Active Substance: AMLODIPINE BESYLATE
  6. MINERALS\VITAMINS [Concomitant]
     Active Substance: MINERALS\VITAMINS
  7. LEVOTHYROXINE [Concomitant]
     Active Substance: LEVOTHYROXINE
  8. AMITRIPTYLINE [Concomitant]
     Active Substance: AMITRIPTYLINE
  9. BUSPAR [Concomitant]
     Active Substance: BUSPIRONE HYDROCHLORIDE
  10. LOMOTIL [Concomitant]
     Active Substance: ATROPINE SULFATE\DIPHENOXYLATE HYDROCHLORIDE
  11. COLESTIPOL [Concomitant]
     Active Substance: COLESTIPOL
  12. ATENOLOL [Concomitant]
     Active Substance: ATENOLOL

REACTIONS (5)
  - Off label use [Unknown]
  - Off label use [Unknown]
  - Hallucination, auditory [Not Recovered/Not Resolved]
  - Hallucination [Unknown]
  - Vitreous floaters [Unknown]

NARRATIVE: CASE EVENT DATE: 20030101
